FAERS Safety Report 8344015 (Version 2)
Quarter: 2012Q4

REPORT INFORMATION
  Report Type: Spontaneous
  Country: US (occurrence: None)
  Receive Date: 20120103
  Receipt Date: 20120904
  Transmission Date: 20130627
  Serious: Yes (Life-Threatening, Hospitalization)
  Sender: FDA-Public Use
  Company Number: 2011030647

PATIENT
  Sex: Male
  Weight: 126 kg

DRUGS (13)
  1. PRIVIGEN [Suspect]
     Indication: MYASTHENIA GRAVIS CRISIS
     Route: 042
     Dates: start: 20111223, end: 20111226
  2. PRIVIGEN [Suspect]
     Indication: MYASTHENIA GRAVIS CRISIS
     Dosage: SEE IMAGE
     Route: 042
     Dates: start: 20111223, end: 20111226
  3. PRIVIGEN [Suspect]
     Indication: MYASTHENIA GRAVIS CRISIS
     Dosage: SEE IMAGE
     Route: 042
     Dates: start: 20111223, end: 20111226
  4. LOVENOX [Concomitant]
  5. AMLODIPINE [Concomitant]
  6. FAMOTIDINE [Concomitant]
  7. HYDROCHLOROTHIAZIDE [Concomitant]
  8. LISINOPRIL [Concomitant]
  9. PYRIDOSTIGMINE (PYRIDOSTIGMINE) [Concomitant]
  10. PREDNISONE [Concomitant]
  11. ACETAMINOPHEN [Concomitant]
  12. DOCUSATE (DOCUSATE) [Concomitant]
  13. HYDRALAZINE HYDROCHLORIDE [Concomitant]

REACTIONS (3)
  - Blood pressure increased [None]
  - Infusion related reaction [None]
  - Off label use [None]
